FAERS Safety Report 9223186 (Version 1)
Quarter: 2013Q2

REPORT INFORMATION
  Report Type: Spontaneous
  Country: US (occurrence: None)
  Receive Date: 20130409
  Receipt Date: 20130409
  Transmission Date: 20140414
  Serious: Yes (Death)
  Sender: FDA-Public Use
  Company Number: None

PATIENT
  Age: 18 Year
  Sex: Female
  Weight: 54.43 kg

DRUGS (1)
  1. BEYAZ [Suspect]
     Indication: ACNE
     Dosage: 1  DAILY  PO
     Route: 048
     Dates: start: 20120101, end: 20130320

REACTIONS (11)
  - Thrombosis [None]
  - Pulmonary embolism [None]
  - Pain in extremity [None]
  - Vomiting [None]
  - Unresponsive to stimuli [None]
  - General physical condition abnormal [None]
  - Electroencephalogram abnormal [None]
  - Cardiac failure [None]
  - Pericardial haemorrhage [None]
  - Pulmonary haemorrhage [None]
  - Cerebral haemorrhage [None]
